FAERS Safety Report 7355007-1 (Version None)
Quarter: 2011Q1

REPORT INFORMATION
  Report Type: 
  Country: None (occurrence: None)
  Receive Date: 20110316
  Receipt Date: 20110210
  Transmission Date: 20110831
  Serious: Yes (Hospitalization, Other)
  Sender: FDA-Public Use
  Company Number: US-BAYER-201029623NA

PATIENT
  Sex: Female
  Weight: 94.331 kg

DRUGS (15)
  1. UNCODEABLE ^UNCLASSIFIABLE^ [Concomitant]
     Indication: IRON DEFICIENCY
     Dosage: UNK
     Dates: start: 20080522
  2. DECADRON [Concomitant]
     Dosage: 20 MG, UNK
     Route: 042
  3. TOPROL-XL [Concomitant]
     Route: 048
  4. UNCODEABLE ^INVESTIGATIONAL DRUG^ [Concomitant]
  5. YAZ [Suspect]
     Indication: PREMENSTRUAL SYNDROME
     Dosage: UNK UNK, UNK
     Route: 048
     Dates: start: 20080301, end: 20080717
  6. HYDROCHLOROTHIAZIDE [Concomitant]
     Dosage: 25 MG, UNK
  7. METOPROLOL SUCCINATE [Concomitant]
     Dosage: 100 MG, UNK
  8. NEXIUM [Concomitant]
     Dosage: 40 MG, UNK
     Dates: start: 20080611
  9. YAZ [Suspect]
     Indication: AFFECTIVE DISORDER
  10. EFFEXOR XR [Concomitant]
  11. DARVOCET [Concomitant]
     Indication: MIGRAINE
     Dosage: UNK
  12. TORADOL [Concomitant]
     Dosage: 30 MG, QD
     Route: 042
     Dates: start: 20080715
  13. BENADRYL [Concomitant]
     Dosage: 50 MG, UNK
     Route: 042
     Dates: start: 20080715
  14. PREVACID [Concomitant]
     Dosage: 30 MG, UNK
     Dates: start: 20080721
  15. HEPARIN [Concomitant]
     Dosage: UNK
     Route: 041
     Dates: start: 20080715

REACTIONS (5)
  - NON-CARDIAC CHEST PAIN [None]
  - PLEURITIC PAIN [None]
  - PULMONARY EMBOLISM [None]
  - PULMONARY INFARCTION [None]
  - DYSPNOEA [None]
